FAERS Safety Report 13523683 (Version 1)
Quarter: 2017Q2

REPORT INFORMATION
  Report Type: Spontaneous
  Country: US (occurrence: US)
  Receive Date: 20170508
  Receipt Date: 20170508
  Transmission Date: 20170830
  Serious: No
  Sender: FDA-Public Use
  Company Number: US-VIFOR (INTERNATIONAL) INC.-VIT-2017-01236

PATIENT
  Sex: Male

DRUGS (8)
  1. DONEPEZIL. [Concomitant]
     Active Substance: DONEPEZIL
  2. RANITIDINE. [Concomitant]
     Active Substance: RANITIDINE
  3. VELTASSA [Suspect]
     Active Substance: PATIROMER
     Indication: PRODUCT USED FOR UNKNOWN INDICATION
     Route: 048
  4. SODIUM BICARBONATE. [Concomitant]
     Active Substance: SODIUM BICARBONATE
  5. PRAVASTATIN. [Concomitant]
     Active Substance: PRAVASTATIN
  6. AMOXICILLIN. [Concomitant]
     Active Substance: AMOXICILLIN
  7. DULOXETINE. [Concomitant]
     Active Substance: DULOXETINE
  8. MIRTAZAPINE. [Concomitant]
     Active Substance: MIRTAZAPINE

REACTIONS (1)
  - Diarrhoea [Unknown]
